FAERS Safety Report 5576042-X (Version None)
Quarter: 2007Q4

REPORT INFORMATION
  Report Type: 
  Country: None (occurrence: None)
  Receive Date: 20071228
  Receipt Date: 20071114
  Transmission Date: 20080405
  Serious: No
  Sender: FDA-Public Use
  Company Number: A0694501A

PATIENT
  Age: 79 Year
  Sex: Male

DRUGS (2)
  1. ADVAIR DISKUS 100/50 [Suspect]
     Indication: CHRONIC OBSTRUCTIVE PULMONARY DISEASE
     Dosage: 1PUFF TWICE PER DAY
     Route: 055
     Dates: start: 20070801
  2. MULTIPLE MEDICATIONS [Concomitant]

REACTIONS (2)
  - DRY EYE [None]
  - EYE IRRITATION [None]
